FAERS Safety Report 16292333 (Version 1)
Quarter: 2019Q2

REPORT INFORMATION
  Report Type: Spontaneous
  Country: GR (occurrence: GR)
  Receive Date: 20190509
  Receipt Date: 20190509
  Transmission Date: 20190711
  Serious: Yes (Other)
  Sender: FDA-Public Use
  Company Number: GR-TEVA-2019-GR-1046706

PATIENT
  Age: 57 Year
  Sex: Female
  Weight: 98 kg

DRUGS (4)
  1. EZETIMIBE. [Suspect]
     Active Substance: EZETIMIBE
  2. ROSUVASTATIN. [Suspect]
     Active Substance: ROSUVASTATIN
  3. PRAVASTATIN. [Suspect]
     Active Substance: PRAVASTATIN
  4. ATORVASTATIN [Suspect]
     Active Substance: ATORVASTATIN
     Indication: DYSLIPIDAEMIA

REACTIONS (4)
  - Myalgia [Unknown]
  - Gait inability [Unknown]
  - Tendon rupture [Unknown]
  - Tendonitis [Unknown]
